FAERS Safety Report 12115587 (Version 1)
Quarter: 2016Q1

REPORT INFORMATION
  Report Type: Spontaneous
  Country: US (occurrence: US)
  Receive Date: 20160225
  Receipt Date: 20160225
  Transmission Date: 20160526
  Serious: No
  Sender: FDA-Public Use
  Company Number: US-MYLANLABS-2015M1005947

PATIENT
  Age: 27 Year
  Sex: Male

DRUGS (1)
  1. AMNESTEEM [Suspect]
     Active Substance: ISOTRETINOIN
     Indication: ACNE
     Dosage: 10 MG, QD
     Route: 048
     Dates: start: 201501, end: 201501

REACTIONS (5)
  - Visual impairment [Not Recovered/Not Resolved]
  - Dry eye [Recovered/Resolved]
  - Photopsia [Not Recovered/Not Resolved]
  - Depressed mood [Recovered/Resolved]
  - Vitreous floaters [Not Recovered/Not Resolved]

NARRATIVE: CASE EVENT DATE: 201501
